FAERS Safety Report 13680956 (Version 2)
Quarter: 2017Q3

REPORT INFORMATION
  Report Type: Spontaneous
  Country: IN (occurrence: IN)
  Receive Date: 20170623
  Receipt Date: 20170711
  Transmission Date: 20171127
  Serious: Yes (Death, Life-Threatening, Other)
  Sender: FDA-Public Use
  Company Number: IN-CONCORDIA PHARMACEUTICALS INC.-E2B_00008203

PATIENT
  Age: 45 Year
  Sex: Male

DRUGS (3)
  1. PREDNISOLONE. [Suspect]
     Active Substance: PREDNISOLONE
  2. CARBAMAZEPINE. [Suspect]
     Active Substance: CARBAMAZEPINE
     Indication: BIPOLAR DISORDER
  3. PREDNISOLONE. [Suspect]
     Active Substance: PREDNISOLONE
     Indication: RASH MACULO-PAPULAR

REACTIONS (5)
  - Multiple organ dysfunction syndrome [Fatal]
  - Mucormycosis [Fatal]
  - Septic encephalopathy [Fatal]
  - Toxic epidermal necrolysis [Fatal]
  - Staphylococcal sepsis [Fatal]
